FAERS Safety Report 8785249 (Version 2)
Quarter: 2012Q4

REPORT INFORMATION
  Report Type: 
  Country: DE (occurrence: DE)
  Receive Date: 20120914
  Receipt Date: 20121001
  Transmission Date: 20130627
  Serious: Yes (Hospitalization)
  Sender: FDA-Public Use
  Company Number: DE-TEVA-358105GER

PATIENT
  Age: 48 Year
  Sex: Female

DRUGS (5)
  1. OLANZAPINE [Suspect]
     Indication: SCHIZOPHRENIA, CATATONIC TYPE
     Dosage: 10 Milligram Daily;
     Route: 065
  2. OLANZAPINE [Suspect]
     Indication: SCHIZOPHRENIA, CATATONIC TYPE
     Dosage: 30 Milligram Daily;
     Route: 065
     Dates: start: 20101201
  3. LORAZEPAM [Suspect]
     Dosage: 4.5 Milligram Daily;
     Route: 065
  4. HALOPERIDOL [Concomitant]
     Dosage: 5 Milligram Daily;
  5. HALOPERIDOL [Concomitant]
     Dosage: 2 Milligram Daily;

REACTIONS (1)
  - Hypothermia [Recovered/Resolved]
